FAERS Safety Report 4326392-X (Version None)
Quarter: 2004Q1

REPORT INFORMATION
  Report Type: 
  Country: None (occurrence: None)
  Receive Date: 20040330
  Receipt Date: 20040320
  Transmission Date: 20041129
  Serious: Yes (Other)
  Sender: FDA-Public Use
  Company Number: PHBS2004IT04034

PATIENT
  Age: 50 Year
  Sex: Male

DRUGS (2)
  1. LESCOL [Suspect]
     Dosage: 80 MG, UNK
  2. PROCAPTAN [Suspect]

REACTIONS (2)
  - GASTRIC ULCER HAEMORRHAGE [None]
  - GASTRITIS [None]
